FAERS Safety Report 8107213-6 (Version None)
Quarter: 2012Q1

REPORT INFORMATION
  Report Type: 
  Country: None (occurrence: None)
  Receive Date: 20120202
  Receipt Date: 20120120
  Transmission Date: 20120608
  Serious: Yes (Hospitalization)
  Sender: FDA-Public Use
  Company Number: US-ELI_LILLY_AND_COMPANY-US201104006284

PATIENT
  Sex: Female

DRUGS (7)
  1. FORTEO [Suspect]
     Dosage: 20 UG, QD
  2. LIPITOR [Concomitant]
  3. FORTEO [Suspect]
     Dosage: 20 UG, QD
  4. ANTIHYPERTENSIVES [Concomitant]
     Indication: HYPERTENSION
  5. FORTEO [Suspect]
     Dosage: 20 UG, QD
     Route: 065
  6. FORTEO [Suspect]
     Indication: OSTEOPOROSIS
     Dosage: 20 UG, QD
     Route: 065
  7. ANALGESICS [Concomitant]

REACTIONS (11)
  - RIB FRACTURE [None]
  - ROAD TRAFFIC ACCIDENT [None]
  - INSOMNIA [None]
  - UPPER LIMB FRACTURE [None]
  - HOT FLUSH [None]
  - COUGH [None]
  - INTENTIONAL DRUG MISUSE [None]
  - MUSCULOSKELETAL PAIN [None]
  - PAIN IN EXTREMITY [None]
  - CLAVICLE FRACTURE [None]
  - MOVEMENT DISORDER [None]
